FAERS Safety Report 17523818 (Version 1)
Quarter: 2020Q1

REPORT INFORMATION
  Report Type: Spontaneous
  Country: US (occurrence: US)
  Receive Date: 20200302
  Receipt Date: 20200302
  Transmission Date: 20200409
  Serious: No
  Sender: FDA-Public Use
  Company Number: None

PATIENT
  Age: 70 Year
  Sex: Female

DRUGS (1)
  1. SPRYCEL [Suspect]
     Active Substance: DASATINIB
     Route: 048
     Dates: start: 20200123

REACTIONS (4)
  - Peripheral swelling [None]
  - Rash [None]
  - Skin lesion [None]
  - Pruritus [None]

NARRATIVE: CASE EVENT DATE: 20200302
